FAERS Safety Report 5795671-1 (Version None)
Quarter: 2008Q2

REPORT INFORMATION
  Report Type: 
  Country: None (occurrence: None)
  Receive Date: 20080630
  Receipt Date: 20080623
  Transmission Date: 20081010
  Serious: Yes (Other)
  Sender: FDA-Public Use
  Company Number: JP-PFIZER INC-2008053574

PATIENT
  Sex: Male

DRUGS (12)
  1. DALACIN S [Suspect]
     Route: 042
     Dates: start: 20080504, end: 20080608
  2. PAZUCROSS [Concomitant]
     Route: 042
     Dates: start: 20080504, end: 20080608
  3. HICALIQ [Concomitant]
     Route: 042
  4. PRIMPERAN TAB [Concomitant]
     Route: 042
  5. PANTOL [Concomitant]
     Route: 042
  6. SOLDEM 3A [Concomitant]
     Route: 042
  7. AMINO ACIDS [Concomitant]
     Route: 042
  8. VITAJECT [Concomitant]
     Route: 042
  9. DOPAMINE HYDROCHLORIDE [Concomitant]
     Route: 042
  10. HUMULIN R [Concomitant]
  11. HEPARIN [Concomitant]
     Route: 042
  12. OMEPRAL [Concomitant]
     Route: 042

REACTIONS (2)
  - DRUG INEFFECTIVE [None]
  - RENAL FAILURE ACUTE [None]
